FAERS Safety Report 9788659 (Version 1)
Quarter: 2013Q4

REPORT INFORMATION
  Report Type: Spontaneous
  Country: RU (occurrence: RU)
  Receive Date: 20131230
  Receipt Date: 20131230
  Transmission Date: 20140711
  Serious: Yes (Hospitalization)
  Sender: FDA-Public Use
  Company Number: PHHY2013RU151817

PATIENT
  Age: 40 Year
  Sex: Female

DRUGS (2)
  1. GLIVEC [Suspect]
     Route: 048
  2. ENALAPRIL [Concomitant]
     Route: 048

REACTIONS (3)
  - Hyperthermia [Recovered/Resolved]
  - Myalgia [Recovered/Resolved]
  - Rash [Recovered/Resolved]
